FAERS Safety Report 9700635 (Version 3)
Quarter: 2014Q1

REPORT INFORMATION
  Report Type: Spontaneous
  Country: GB (occurrence: GB)
  Receive Date: 20131121
  Receipt Date: 20140303
  Transmission Date: 20141002
  Serious: Yes (Other)
  Sender: FDA-Public Use
  Company Number: PHFR2013GB005551

PATIENT
  Age: 45 Year
  Sex: Female

DRUGS (8)
  1. CLOZARIL [Suspect]
     Indication: SCHIZOPHRENIA
     Dosage: UNK
     Route: 048
     Dates: start: 20010701
  2. CLOZARIL [Suspect]
     Dosage: UNK
     Route: 048
  3. CLOZARIL [Suspect]
     Dosage: 400 MG, DAILY
     Route: 048
  4. CLOZARIL [Suspect]
     Dosage: 200 MG, NOCTE
  5. LANSOPRAZOL [Concomitant]
     Indication: GASTRITIS
     Dosage: 15 MG, DAILY
     Route: 048
  6. VENTOLINE INHALATOR [Concomitant]
     Indication: ASTHMA
     Dosage: UNK UKN, UNK
     Route: 055
  7. BECOTIDE [Concomitant]
     Indication: ASTHMA
     Dosage: UNK UKN, UNK
     Route: 055
  8. FYBOGEL [Concomitant]
     Indication: CONSTIPATION
     Dosage: UNK UKN, TID
     Route: 048

REACTIONS (9)
  - Anaemia [Recovering/Resolving]
  - Antipsychotic drug level above therapeutic [Recovering/Resolving]
  - Gastritis [Recovered/Resolved]
  - Vitamin B12 decreased [Recovering/Resolving]
  - Blood folate decreased [Recovering/Resolving]
  - White blood cell count increased [Recovering/Resolving]
  - Neutrophil count increased [Recovering/Resolving]
  - Diarrhoea [Recovered/Resolved]
  - Platelet count increased [Recovering/Resolving]
